FAERS Safety Report 23722213 (Version 1)
Quarter: 2024Q2

REPORT INFORMATION
  Report Type: Spontaneous
  Country: US (occurrence: None)
  Receive Date: 20240409
  Receipt Date: 20240409
  Transmission Date: 20240716
  Serious: Yes (Life-Threatening, Hospitalization, Other)
  Sender: FDA-Public Use
  Company Number: US-INFO-20240078

PATIENT
  Age: 62 Year
  Sex: Female

DRUGS (13)
  1. MONTELUKAST [Concomitant]
     Active Substance: MONTELUKAST SODIUM
  2. LEVOFLOXACIN [Concomitant]
     Active Substance: LEVOFLOXACIN
     Indication: Pneumonia
  3. SULFAMETHOXAZOLE\TRIMETHOPRIM [Interacting]
     Active Substance: SULFAMETHOXAZOLE\TRIMETHOPRIM
     Indication: Antifungal prophylaxis
  4. ALBUTEROL, IPRATROPIUM [Concomitant]
  5. POLYETHYLENE GLYCOL [Concomitant]
     Active Substance: POLYETHYLENE GLYCOL
  6. FLUCONAZOLE [Interacting]
     Active Substance: FLUCONAZOLE
     Indication: Oropharyngeal candidiasis
  7. BICTEGRAVIR, EMTRICITABINE, TENOFOVIR [Concomitant]
  8. SCOPOLAMINE [Interacting]
     Active Substance: SCOPOLAMINE
     Indication: Nausea
     Dosage: ()
     Route: 062
  9. SENNOSIDES [Concomitant]
     Active Substance: SENNOSIDES
  10. HEPARIN [Concomitant]
     Active Substance: HEPARIN SODIUM
     Dosage: ()
     Route: 058
  11. PREGABALIN [Concomitant]
     Active Substance: PREGABALIN
  12. BUDESONIDE [Concomitant]
     Active Substance: BUDESONIDE
  13. GUAIFENESIN [Concomitant]
     Active Substance: GUAIFENESIN

REACTIONS (2)
  - Drug interaction [Recovered/Resolved]
  - Supraventricular tachycardia [Recovered/Resolved]
